FAERS Safety Report 9325912 (Version 1)
Quarter: 2013Q2

REPORT INFORMATION
  Report Type: Spontaneous
  Country: US (occurrence: US)
  Receive Date: 20130604
  Receipt Date: 20130604
  Transmission Date: 20140414
  Serious: Yes (Hospitalization)
  Sender: FDA-Public Use
  Company Number: US-JNJFOC-20130517049

PATIENT
  Age: 60 Year
  Sex: Female

DRUGS (1)
  1. EXTRA STRENGTH TYLENOL [Suspect]
     Indication: PAIN
     Dosage: 1 CAPLET ONLY AS NEEDED
     Route: 048

REACTIONS (1)
  - Dyspnoea [Recovering/Resolving]
